FAERS Safety Report 5814469-9 (Version None)
Quarter: 2008Q3

REPORT INFORMATION
  Report Type: 
  Country: None (occurrence: None)
  Receive Date: 20080715
  Receipt Date: 20080630
  Transmission Date: 20090109
  Serious: Yes (Death)
  Sender: FDA-Public Use
  Company Number: DSM-2008-00621

PATIENT
  Age: 68 Year
  Sex: Male

DRUGS (3)
  1. PLAUNAC (OLMESARTAN MEDOXOMIL) (20 MILLIGRAM, TABLET) (OLMESARTAN MEDO [Suspect]
     Indication: HYPERTENSION
     Dosage: (1 IN 2 D), ORAL
     Route: 048
     Dates: start: 20080417, end: 20080622
  2. PLAUNAZIDE (HYDROCHLOROTHIAZIDE, OLMESARTAN MEDOXOMIL) (TABLET) (HYDRO [Suspect]
     Indication: HYPERTENSION
     Dosage: (1 IN 2 D), ORAL
     Route: 048
     Dates: start: 20080417, end: 20080622
  3. VIAGRA [Suspect]
     Dosage: (100 MG), ORAL
     Route: 048
     Dates: start: 20050101, end: 20080622

REACTIONS (5)
  - CEREBROVASCULAR INSUFFICIENCY [None]
  - DRUG INTERACTION [None]
  - HYPOTENSION [None]
  - SUDDEN DEATH [None]
  - SYNCOPE [None]
